FAERS Safety Report 11904478 (Version 1)
Quarter: 2016Q1

REPORT INFORMATION
  Report Type: Spontaneous
  Country: US (occurrence: US)
  Receive Date: 20160108
  Receipt Date: 20160108
  Transmission Date: 20160526
  Serious: No
  Sender: FDA-Public Use
  Company Number: US-ROCHE-1634790

PATIENT
  Sex: Female

DRUGS (2)
  1. RITUXAN [Suspect]
     Active Substance: RITUXIMAB
     Indication: WHITE BLOOD CELL COUNT INCREASED
  2. RITUXAN [Suspect]
     Active Substance: RITUXIMAB
     Indication: HYPOGAMMAGLOBULINAEMIA
     Route: 065

REACTIONS (4)
  - Splenomegaly [Recovering/Resolving]
  - Drug intolerance [Unknown]
  - White blood cell count decreased [Unknown]
  - Platelet count increased [Unknown]
